FAERS Safety Report 8776787 (Version 2)
Quarter: 2012Q4

REPORT INFORMATION
  Report Type: 
  Country: US (occurrence: US)
  Receive Date: 20120910
  Receipt Date: 20121004
  Transmission Date: 20130627
  Serious: Yes (Hospitalization)
  Sender: FDA-Public Use
  Company Number: US-JNJFOC-20120901473

PATIENT
  Age: 35 Year
  Sex: Female

DRUGS (1)
  1. NUCYNTA ER [Suspect]
     Indication: PAIN
     Dosage: between 150-200 mg
     Route: 065

REACTIONS (1)
  - Gastrointestinal disorder [Unknown]
